FAERS Safety Report 10606739 (Version 5)
Quarter: 2017Q4

REPORT INFORMATION
  Report Type: Spontaneous
  Country: US (occurrence: US)
  Receive Date: 20141125
  Receipt Date: 20171006
  Transmission Date: 20180320
  Serious: Yes (Hospitalization, Disabling, Other)
  Sender: FDA-Public Use
  Company Number: US-009507513-1411USA008926

PATIENT
  Sex: Female
  Weight: 63.49 kg

DRUGS (3)
  1. FOSAMAX [Suspect]
     Active Substance: ALENDRONATE SODIUM
     Indication: OSTEOPOROSIS
     Dosage: 70 MG, QW
     Route: 048
     Dates: start: 199510, end: 200801
  2. ALENDRONATE SODIUM. [Suspect]
     Active Substance: ALENDRONATE SODIUM
     Indication: OSTEOPOROSIS
     Dosage: 70 MG, QW
     Route: 048
     Dates: start: 200802, end: 201009
  3. CALCIUM (UNSPECIFIED) [Concomitant]
     Active Substance: CALCIUM
     Indication: ROUTINE HEALTH MAINTENANCE
     Dosage: 600 MG, QD
     Route: 065
     Dates: start: 1990

REACTIONS (20)
  - Developmental hip dysplasia [Unknown]
  - Joint crepitation [Unknown]
  - Infection [Unknown]
  - Device loosening [Unknown]
  - Blood cholesterol increased [Unknown]
  - Arthropathy [Unknown]
  - Limb deformity [Unknown]
  - Hypoaesthesia [Unknown]
  - Pancreatitis [Unknown]
  - Gingival disorder [Unknown]
  - Femur fracture [Unknown]
  - Bone deformity [Unknown]
  - Device related infection [Unknown]
  - Depression [Unknown]
  - Neck injury [Not Recovered/Not Resolved]
  - Pain in extremity [Unknown]
  - Osteoporosis [Unknown]
  - Back pain [Unknown]
  - Hypercholesterolaemia [Unknown]
  - Nervousness [Unknown]

NARRATIVE: CASE EVENT DATE: 1996
